FAERS Safety Report 6174321-9 (Version None)
Quarter: 2009Q2

REPORT INFORMATION
  Report Type: 
  Country: None (occurrence: None)
  Receive Date: 20090430
  Receipt Date: 20080515
  Transmission Date: 20091009
  Serious: No
  Sender: FDA-Public Use
  Company Number: US-ASTRAZENECA-2008UW10041

PATIENT
  Age: 89 Year
  Sex: Female

DRUGS (6)
  1. NEXIUM [Suspect]
     Indication: MUSCULOSKELETAL CHEST PAIN
     Route: 048
  2. NEXIUM [Suspect]
     Indication: ULCER
     Route: 048
  3. THYROID TAB [Concomitant]
  4. NEURONTIN [Concomitant]
  5. POTASSIUM CHLORIDE [Concomitant]
  6. LASIX [Concomitant]

REACTIONS (1)
  - FAECES DISCOLOURED [None]
